FAERS Safety Report 6733663-6 (Version None)
Quarter: 2010Q2

REPORT INFORMATION
  Report Type: 
  Country: None (occurrence: None)
  Receive Date: 20100518
  Receipt Date: 20100506
  Transmission Date: 20101027
  Serious: Yes (Hospitalization)
  Sender: FDA-Public Use
  Company Number: 7004219

PATIENT
  Age: 73 Year
  Sex: Male
  Weight: 102 kg

DRUGS (20)
  1. NOVANTRONE [Suspect]
     Indication: PROSTATE CANCER METASTATIC
     Dosage: 24 MG, 1 IN 21 D, INTRAVENOUS (NOT OTHERWISE SPECIFIED)
     Route: 042
     Dates: start: 20090401, end: 20091028
  2. IMC-1121B [ANTI-VEGFR2 MAB] (INVESTIGATIONAL DRUG) [Suspect]
     Indication: PROSTATE CANCER METASTATIC
     Dosage: 550 MG, 1 IN 1 WK, INTRAVENOUS
     Route: 042
     Dates: start: 20090401, end: 20100203
  3. PREDNISONE TAB [Suspect]
     Indication: PROSTATE CANCER METASTATIC
     Dosage: 10 MG, 2 IN 1 D, ORAL
     Route: 048
     Dates: start: 20090401, end: 20091028
  4. CENTRUM SILVER (CENTRUM SILVER /01292501/) [Concomitant]
  5. COLACE (DOCUSATE SODIUM) [Concomitant]
  6. CARAFATE [Concomitant]
  7. NEXIUM [Concomitant]
  8. CRESTOR [Concomitant]
  9. DIOVAN [Concomitant]
  10. AMLODIPINE BESYLATE AND BENAZEPRIL HCL [Concomitant]
  11. ZOMETA 9ZOLEDRONIC ACID) [Concomitant]
  12. LUPRON [Concomitant]
  13. GARLIC SOFT GEL 9ALLIUM SATIVUM) [Concomitant]
  14. CALTRATE 600 D PLUS (CALCITE D) [Concomitant]
  15. IMMUNE FX (ALL OTHER THERAPEUTIC PRODUCTS) [Concomitant]
  16. DI-INDOLE METHANE (ALL OTHER THERAPEUTIC PRODUCTS) [Concomitant]
  17. PAW PAW EXTRACT (ALL OTHER THERAPEUTIC PRODUCTS) [Concomitant]
  18. CLINDAMYCIN HCL [Concomitant]
  19. TRIGOSAMINE 2 (ALL OTHER THERAPEUTIC PRODUCTS) [Concomitant]
  20. ZYRTEC [Concomitant]

REACTIONS (25)
  - ACTIVATED PARTIAL THROMBOPLASTIN TIME PROLONGED [None]
  - AORTIC VALVE INCOMPETENCE [None]
  - AORTIC VALVE SCLEROSIS [None]
  - ATRIAL FIBRILLATION [None]
  - BLOOD UREA INCREASED [None]
  - BREATH SOUNDS ABNORMAL [None]
  - CARDIAC MURMUR [None]
  - CARDIOMEGALY [None]
  - DILATATION VENTRICULAR [None]
  - DISEASE PROGRESSION [None]
  - DYSPNOEA PAROXYSMAL NOCTURNAL [None]
  - HEART RATE INCREASED [None]
  - INSOMNIA [None]
  - LEFT ATRIAL DILATATION [None]
  - METASTASES TO BONE [None]
  - MITRAL VALVE INCOMPETENCE [None]
  - OEDEMA PERIPHERAL [None]
  - ORTHOPNOEA [None]
  - PALPITATIONS [None]
  - PANCYTOPENIA [None]
  - PLEURAL EFFUSION [None]
  - PROTHROMBIN TIME PROLONGED [None]
  - PULMONARY HYPERTENSION [None]
  - TRICUSPID VALVE INCOMPETENCE [None]
  - WEIGHT INCREASED [None]
